FAERS Safety Report 10195943 (Version 1)
Quarter: 2014Q2

REPORT INFORMATION
  Report Type: Spontaneous
  Country: US (occurrence: None)
  Receive Date: 20140523
  Receipt Date: 20140523
  Transmission Date: 20141212
  Serious: Yes (Hospitalization)
  Sender: FDA-Public Use
  Company Number: None

PATIENT
  Age: 72 Year
  Sex: Male

DRUGS (2)
  1. XTANDI 40MG [Suspect]
     Dosage: 4 CAPSULES QD ORAL
     Route: 048
  2. PREDNISONE [Concomitant]

REACTIONS (3)
  - Pneumonia [None]
  - Pyrexia [None]
  - Fatigue [None]
